FAERS Safety Report 13939724 (Version 2)
Quarter: 2017Q3

REPORT INFORMATION
  Report Type: Spontaneous
  Country: US (occurrence: US)
  Receive Date: 20170906
  Receipt Date: 20170911
  Transmission Date: 20171127
  Serious: Yes (Hospitalization, Other)
  Sender: FDA-Public Use
  Company Number: US-CIPLA LTD.-2017US15861

PATIENT

DRUGS (1)
  1. RISPERIDONE. [Suspect]
     Active Substance: RISPERIDONE
     Dosage: 50 MG, QD, LONG ACTING INJECTION WITH MICROSPHERES
     Route: 048

REACTIONS (8)
  - Pupillary reflex impaired [Unknown]
  - Nausea [Unknown]
  - Fatigue [Unknown]
  - Miosis [Unknown]
  - Disorientation [Unknown]
  - Dizziness [Unknown]
  - Incorrect route of drug administration [Unknown]
  - Asthenia [Unknown]
